FAERS Safety Report 18324248 (Version 1)
Quarter: 2020Q3

REPORT INFORMATION
  Report Type: Other
  Country: US (occurrence: US)
  Receive Date: 20200929
  Receipt Date: 20200929
  Transmission Date: 20201103
  Serious: Yes (Other)
  Sender: FDA-Public Use
  Company Number: US-ROCHE-2686055

PATIENT
  Sex: Female

DRUGS (1)
  1. OCREVUS [Suspect]
     Active Substance: OCRELIZUMAB
     Indication: MULTIPLE SCLEROSIS
     Dosage: DATE OF TREATMENT: 29/JAN/2018, 07/AUG/2018, 13/FEB/2019, 19/AUG/2019, 19/FEB/2020, 19/AUG/2020
     Route: 065
     Dates: start: 20180115

REACTIONS (1)
  - Urinary tract infection [Unknown]
